FAERS Safety Report 9826751 (Version 1)
Quarter: 2013Q4

REPORT INFORMATION
  Report Type: Spontaneous
  Country: US (occurrence: None)
  Receive Date: 20131112
  Receipt Date: 20131112
  Transmission Date: 20140711
  Serious: Yes (Other)
  Sender: FDA-Public Use
  Company Number: E2B_00001205

PATIENT
  Age: 45 Year
  Sex: Male

DRUGS (7)
  1. LISINOPRIL [Suspect]
     Indication: HYPERTENSION
     Route: 048
     Dates: start: 2011
  2. BUPROPION (WELLBUTRIN) [Concomitant]
  3. ATENOLOL [Concomitant]
  4. VERAPAMIL ER [Concomitant]
  5. LAMOTRIGINE [Concomitant]
  6. RISPERIDONE [Concomitant]
  7. FLUOXETIN [Concomitant]

REACTIONS (4)
  - Blood pressure inadequately controlled [None]
  - Dizziness [None]
  - Malaise [None]
  - Drug ineffective [None]
